FAERS Safety Report 19485462 (Version 2)
Quarter: 2021Q3

REPORT INFORMATION
  Report Type: Spontaneous
  Country: US (occurrence: US)
  Receive Date: 20210702
  Receipt Date: 20210927
  Transmission Date: 20211014
  Serious: No
  Sender: FDA-Public Use
  Company Number: US-AMGEN-USASP2021099537

PATIENT
  Sex: Female

DRUGS (3)
  1. PROLIA [Suspect]
     Active Substance: DENOSUMAB
     Indication: PRODUCT USED FOR UNKNOWN INDICATION
     Dosage: UNK
     Route: 065
     Dates: start: 20210503
  2. COVID?19 VACCINE [Concomitant]
     Dosage: SECOND DOSE
     Dates: start: 202102
  3. COVID?19 VACCINE [Concomitant]
     Dosage: FIRST DOSE

REACTIONS (3)
  - Papilloma viral infection [Unknown]
  - Actinic cheilitis [Unknown]
  - Herpes zoster [Unknown]

NARRATIVE: CASE EVENT DATE: 202105
